FAERS Safety Report 5214135-7 (Version None)
Quarter: 2007Q1

REPORT INFORMATION
  Report Type: 
  Country: None (occurrence: None)
  Receive Date: 20070122
  Receipt Date: 20070115
  Transmission Date: 20070707
  Serious: Yes (Disabling)
  Sender: FDA-Public Use
  Company Number: PHBS2007PT01043

PATIENT
  Age: 66 Year
  Sex: Male

DRUGS (6)
  1. STARLIX [Suspect]
     Indication: DIABETES MELLITUS
     Dosage: 360 MG/DAY
     Route: 048
     Dates: start: 20061210, end: 20061217
  2. TAMSULOSIN HCL [Concomitant]
     Dosage: 4 MG/DAY
     Route: 048
     Dates: start: 20060714
  3. ESCITALOPRAM OXALATE [Concomitant]
     Route: 048
     Dates: start: 20060929
  4. TRAZODONE HCL [Concomitant]
     Dosage: 150 MG/DAY
     Route: 048
     Dates: start: 20060714
  5. ALPRAZOLAM [Concomitant]
     Dosage: 1 MG/DAY
     Dates: start: 20060714
  6. SIMVASTATIN [Concomitant]
     Dosage: 20 MG/DAY
     Dates: start: 20060714

REACTIONS (2)
  - DIPLOPIA [None]
  - DIZZINESS [None]
